FAERS Safety Report 5959919-2 (Version None)
Quarter: 2008Q4

REPORT INFORMATION
  Report Type: 
  Country: None (occurrence: None)
  Receive Date: 20081120
  Receipt Date: 20081112
  Transmission Date: 20090506
  Serious: Yes (Death, Hospitalization)
  Sender: FDA-Public Use
  Company Number: US-BIOGENIDEC-2008BI026708

PATIENT
  Age: 49 Year
  Sex: Female

DRUGS (17)
  1. TYSABRI [Suspect]
     Indication: MULTIPLE SCLEROSIS
     Dates: start: 20050223, end: 20050223
  2. TYSABRI [Suspect]
     Route: 042
     Dates: start: 20061109, end: 20080401
  3. ENDOCET [Concomitant]
     Indication: DRUG USE FOR UNKNOWN INDICATION
  4. AMBIEN [Concomitant]
     Indication: DRUG USE FOR UNKNOWN INDICATION
  5. VALIUM [Concomitant]
     Indication: DRUG USE FOR UNKNOWN INDICATION
  6. LASIX [Concomitant]
     Indication: DRUG USE FOR UNKNOWN INDICATION
  7. POTASSIUM CHLORIDE [Concomitant]
     Indication: DRUG USE FOR UNKNOWN INDICATION
  8. SOMA [Concomitant]
     Indication: DRUG USE FOR UNKNOWN INDICATION
  9. BACLOFEN [Concomitant]
     Indication: DRUG USE FOR UNKNOWN INDICATION
  10. ZYPREXA [Concomitant]
     Indication: DRUG USE FOR UNKNOWN INDICATION
  11. DOXEPIN HCL [Concomitant]
     Indication: DRUG USE FOR UNKNOWN INDICATION
  12. CRESTOR [Concomitant]
     Indication: DRUG USE FOR UNKNOWN INDICATION
  13. TOPAMAX [Concomitant]
     Indication: DRUG USE FOR UNKNOWN INDICATION
  14. PREDNISONE TAB [Concomitant]
     Indication: DRUG USE FOR UNKNOWN INDICATION
  15. PROZAC [Concomitant]
     Indication: DRUG USE FOR UNKNOWN INDICATION
  16. ELAVIL [Concomitant]
     Indication: DRUG USE FOR UNKNOWN INDICATION
  17. OXYCONTIN [Concomitant]
     Indication: BREAKTHROUGH PAIN

REACTIONS (7)
  - ABDOMINAL PAIN [None]
  - FALL [None]
  - HAEMATEMESIS [None]
  - INTENTIONAL OVERDOSE [None]
  - NAUSEA [None]
  - OVERDOSE [None]
  - RHABDOMYOLYSIS [None]
